FAERS Safety Report 8050213-5 (Version None)
Quarter: 2012Q1

REPORT INFORMATION
  Report Type: 
  Country: None (occurrence: None)
  Receive Date: 20120117
  Receipt Date: 20120110
  Transmission Date: 20120608
  Serious: Yes (Hospitalization)
  Sender: FDA-Public Use
  Company Number: PHHY2012IT002463

PATIENT
  Sex: Female

DRUGS (1)
  1. LANSOPRAZOLE [Suspect]
     Dosage: 15 MG, DAILY
     Route: 048
     Dates: start: 20120105, end: 20120105

REACTIONS (2)
  - ANGIOEDEMA [None]
  - HYPOTENSION [None]
